FAERS Safety Report 7998038-0 (Version None)
Quarter: 2011Q4

REPORT INFORMATION
  Report Type: 
  Country: None (occurrence: None)
  Receive Date: 20111221
  Receipt Date: 20101207
  Transmission Date: 20120403
  Serious: No
  Sender: FDA-Public Use
  Company Number: US-GLAXOSMITHKLINE-A0898387A

PATIENT
  Age: 68 Year
  Sex: Female

DRUGS (7)
  1. LOVAZA [Suspect]
     Indication: BLOOD TRIGLYCERIDES INCREASED
     Dosage: 2G TWICE PER DAY
     Route: 048
     Dates: start: 20100901
  2. GREEN TEA CAPSULE [Concomitant]
  3. RAMIPRIL [Concomitant]
  4. LEVOXYL [Concomitant]
  5. VITAMIN D [Concomitant]
  6. CO Q 10 [Concomitant]
  7. METOPROLOL TARTRATE [Concomitant]

REACTIONS (3)
  - NAUSEA [None]
  - RETCHING [None]
  - PRODUCT QUALITY ISSUE [None]
